FAERS Safety Report 5559570-2 (Version None)
Quarter: 2007Q4

REPORT INFORMATION
  Report Type: 
  Country: None (occurrence: None)
  Receive Date: 20071214
  Receipt Date: 20071008
  Transmission Date: 20080405
  Serious: No
  Sender: FDA-Public Use
  Company Number: US-ABBOTT-07P-163-0419976-00

PATIENT
  Sex: Female
  Weight: 71.278 kg

DRUGS (10)
  1. HUMIRA [Suspect]
     Indication: CROHN'S DISEASE
     Route: 058
     Dates: start: 20070724
  2. DULOXETINE HYDROCHLORIDE [Concomitant]
     Indication: MYOCARDIAL CALCIFICATION
     Dates: start: 20070724, end: 20071002
  3. DULOXETINE HYDROCHLORIDE [Concomitant]
     Indication: BLOOD CHOLESTEROL INCREASED
  4. FLUOXETINE HYDROCHLORIDE [Concomitant]
     Indication: DRUG USE FOR UNKNOWN INDICATION
  5. LANSOPRAZOLE [Concomitant]
     Indication: DRUG USE FOR UNKNOWN INDICATION
  6. BENTOL [Concomitant]
     Indication: DRUG USE FOR UNKNOWN INDICATION
  7. LOMOTIL [Concomitant]
     Indication: DRUG USE FOR UNKNOWN INDICATION
  8. PROCHLORPERAZINE EDISYLATE [Concomitant]
     Indication: DRUG USE FOR UNKNOWN INDICATION
  9. MEDROXYPROGESTERONE [Concomitant]
     Indication: DRUG USE FOR UNKNOWN INDICATION
  10. TYLOX [Concomitant]
     Indication: PAIN
     Dates: start: 20070901

REACTIONS (4)
  - BLISTER [None]
  - PETECHIAE [None]
  - PRURITUS [None]
  - RASH [None]
